FAERS Safety Report 24704057 (Version 1)
Quarter: 2024Q4

REPORT INFORMATION
  Report Type: Spontaneous
  Country: US (occurrence: US)
  Receive Date: 20241206
  Receipt Date: 20241206
  Transmission Date: 20250115
  Serious: Yes (Other)
  Sender: TEVA
  Company Number: US-TEVA-VS-3258730

PATIENT
  Age: 70 Year
  Sex: Female

DRUGS (1)
  1. QVAR [Suspect]
     Active Substance: BECLOMETHASONE DIPROPIONATE
     Indication: Product used for unknown indication
     Dosage: INHALATION - AEROSOL,  REDIHALER
     Route: 055

REACTIONS (3)
  - Foreign body in throat [Recovered/Resolved]
  - Product contamination physical [Unknown]
  - Cough [Unknown]

NARRATIVE: CASE EVENT DATE: 20241023
